FAERS Safety Report 6203998-4 (Version None)
Quarter: 2009Q2

REPORT INFORMATION
  Report Type: 
  Country: None (occurrence: None)
  Receive Date: 20090521
  Receipt Date: 20090512
  Transmission Date: 20091009
  Serious: Yes (Hospitalization)
  Sender: FDA-Public Use
  Company Number: APP200900279

PATIENT
  Age: 42 Year
  Sex: Female

DRUGS (3)
  1. HEPARIN SODIUM INJECTION [Suspect]
     Indication: CORONARY ARTERY THROMBOSIS
  2. ENOXAPARIN SODIUM [Suspect]
     Indication: ACUTE MYOCARDIAL INFARCTION
     Dosage: 1 MG/KG, 1 IN 12 HR
  3. EPTIFIBATIDE (EPTIFIBATIDE) [Suspect]
     Indication: ACUTE MYOCARDIAL INFARCTION

REACTIONS (2)
  - SHOCK [None]
  - UNEVALUABLE EVENT [None]
